FAERS Safety Report 7064877-6 (Version None)
Quarter: 2010Q4

REPORT INFORMATION
  Report Type: 
  Country: None (occurrence: None)
  Receive Date: 20101027
  Receipt Date: 19920501
  Transmission Date: 20110411
  Serious: Yes (Death)
  Sender: FDA-Public Use
  Company Number: US-ROCHE-920200750001

PATIENT
  Age: 60 Year
  Sex: Male

DRUGS (2)
  1. ROFERON-A [Suspect]
     Route: 058
     Dates: start: 19920424, end: 19920430
  2. INSULIN [Concomitant]
     Route: 042

REACTIONS (3)
  - INFLUENZA LIKE ILLNESS [None]
  - MALIGNANT NEOPLASM PROGRESSION [None]
  - RASH [None]
